FAERS Safety Report 17759984 (Version 1)
Quarter: 2020Q2

REPORT INFORMATION
  Report Type: Spontaneous
  Country: US (occurrence: US)
  Receive Date: 20200508
  Receipt Date: 20200508
  Transmission Date: 20200714
  Serious: Yes (Other)
  Sender: FDA-Public Use
  Company Number: US-MYLANLABS-2020M1042284

PATIENT
  Sex: Female
  Weight: 93 kg

DRUGS (8)
  1. FEBUXOSTAT TABLETS [Suspect]
     Active Substance: FEBUXOSTAT
     Indication: GOUT
     Dosage: UNK
     Route: 048
  2. FEBUXOSTAT TABLETS [Suspect]
     Active Substance: FEBUXOSTAT
     Indication: NEUROPATHY PERIPHERAL
  3. GLIPIZIDE. [Concomitant]
     Active Substance: GLIPIZIDE
     Indication: DIABETES MELLITUS
     Dosage: UNK (APOTEX)
  4. ULORIC [Suspect]
     Active Substance: FEBUXOSTAT
     Indication: GOUT
     Dosage: UNK
     Route: 048
  5. ULORIC [Suspect]
     Active Substance: FEBUXOSTAT
     Indication: NEUROPATHY PERIPHERAL
  6. PRAVASTATIN. [Concomitant]
     Active Substance: PRAVASTATIN
     Dosage: UNK (APOTEX)
  7. GABAPENTIN. [Concomitant]
     Active Substance: GABAPENTIN
     Dosage: UNK (CIPLA )
  8. OXYCODONE [Concomitant]
     Active Substance: OXYCODONE
     Dosage: UNK (ROCHE PHARMACY )

REACTIONS (3)
  - Condition aggravated [Not Recovered/Not Resolved]
  - Pain [Not Recovered/Not Resolved]
  - Neuropathy peripheral [Not Recovered/Not Resolved]
